FAERS Safety Report 24605778 (Version 1)
Quarter: 2024Q4

REPORT INFORMATION
  Report Type: Report from Study
  Country: RU (occurrence: RU)
  Receive Date: 20241111
  Receipt Date: 20241111
  Transmission Date: 20250115
  Serious: Yes (Other)
  Sender: ALEXION PHARMACEUTICALS
  Company Number: RU-AstraZeneca-CH-00741031A

PATIENT
  Age: 12 Year
  Weight: 48 kg

DRUGS (16)
  1. SELUMETINIB [Suspect]
     Active Substance: SELUMETINIB
     Indication: Neurofibromatosis
     Dosage: 70 MILLIGRAM
  2. SELUMETINIB [Suspect]
     Active Substance: SELUMETINIB
     Dosage: 70 MILLIGRAM
  3. SELUMETINIB [Suspect]
     Active Substance: SELUMETINIB
     Dosage: 70 MILLIGRAM
  4. SELUMETINIB [Suspect]
     Active Substance: SELUMETINIB
     Dosage: 70 MILLIGRAM
  5. OFLOMELID [Concomitant]
     Dosage: UNK
  6. OFLOMELID [Concomitant]
     Dosage: UNK
  7. SULSEN [Concomitant]
     Dosage: UNK
  8. SULSEN [Concomitant]
     Dosage: UNK
     Route: 065
  9. Citrovit [Concomitant]
     Dosage: UNK
     Route: 065
  10. Citrovit [Concomitant]
     Dosage: UNK
  11. Citrovit [Concomitant]
     Dosage: UNK
     Route: 065
  12. Citrovit [Concomitant]
     Dosage: UNK
  13. Citrovit [Concomitant]
     Dosage: UNK
     Route: 065
  14. Citrovit [Concomitant]
     Dosage: UNK
  15. Citrovit [Concomitant]
     Dosage: UNK
     Route: 065
  16. Citrovit [Concomitant]
     Dosage: UNK

REACTIONS (3)
  - Seborrhoeic dermatitis [Recovered/Resolved]
  - Paronychia [Not Recovered/Not Resolved]
  - Ingrowing nail [Recovered/Resolved with Sequelae]
